FAERS Safety Report 4498118-0 (Version None)
Quarter: 2004Q4

REPORT INFORMATION
  Report Type: 
  Country: None (occurrence: None)
  Receive Date: 20041110
  Receipt Date: 20041105
  Transmission Date: 20050328
  Serious: Yes (Hospitalization)
  Sender: FDA-Public Use
  Company Number: PT-MERCK-0411PRT00003

PATIENT
  Age: 49 Year
  Sex: Female

DRUGS (4)
  1. DOLOBID [Suspect]
     Route: 048
     Dates: start: 19980101
  2. SULFASALAZINE [Suspect]
     Route: 048
     Dates: start: 19980301
  3. MESALAMINE [Suspect]
     Route: 065
  4. ACETAMINOPHEN [Suspect]
     Route: 065

REACTIONS (4)
  - ANAPHYLACTIC SHOCK [None]
  - OEDEMA [None]
  - RASH [None]
  - URTICARIA [None]
